FAERS Safety Report 16038302 (Version 5)
Quarter: 2019Q2

REPORT INFORMATION
  Report Type: Report from Study
  Country: GB (occurrence: GB)
  Receive Date: 20190305
  Receipt Date: 20190426
  Transmission Date: 20190711
  Serious: Yes (Hospitalization)
  Sender: FDA-Public Use
  Company Number: PHHY2019GB046927

PATIENT
  Age: 77 Year
  Sex: Female

DRUGS (1)
  1. HYRIMOZ [Suspect]
     Active Substance: ADALIMUMAB-ADAZ
     Indication: RHEUMATOID ARTHRITIS
     Dosage: 40 MG, FORTNIGHTLY (PRE-FILLED PEN)
     Route: 058
     Dates: start: 20190114, end: 20190319

REACTIONS (9)
  - Malaise [Recovering/Resolving]
  - Eye swelling [Unknown]
  - Paraesthesia [Unknown]
  - Hyponatraemia [Unknown]
  - Nausea [Unknown]
  - Eye pain [Unknown]
  - Gait disturbance [Unknown]
  - Hypertension [Recovering/Resolving]
  - Nonspecific reaction [Unknown]

NARRATIVE: CASE EVENT DATE: 20190225
